FAERS Safety Report 6150034-4 (Version None)
Quarter: 2009Q2

REPORT INFORMATION
  Report Type: 
  Country: None (occurrence: None)
  Receive Date: 20090409
  Receipt Date: 20090403
  Transmission Date: 20091009
  Serious: Yes (Death)
  Sender: FDA-Public Use
  Company Number: B0569231A

PATIENT
  Age: 49 Year
  Sex: Female

DRUGS (16)
  1. WELLBUTRIN [Suspect]
  2. FENTANYL [Suspect]
  3. MIRTAZAPINE [Suspect]
  4. OLANZAPINE [Suspect]
  5. SINGULAIR [Concomitant]
  6. REMERON [Concomitant]
  7. HYDROMORPHONE HCL [Concomitant]
  8. NEFAZODONE HCL [Concomitant]
  9. AMITRIPTYLINE HCL [Concomitant]
  10. PROCHLORPERAZINE [Concomitant]
  11. LORAZEPAM [Concomitant]
  12. GEODON [Concomitant]
  13. FLURAZEPAM [Concomitant]
  14. PREVACID [Concomitant]
  15. FAMOTIDINE [Concomitant]
  16. METOCLOPRAMIDE [Concomitant]

REACTIONS (2)
  - DEPRESSED LEVEL OF CONSCIOUSNESS [None]
  - DRUG TOXICITY [None]
